FAERS Safety Report 26130645 (Version 1)
Quarter: 2025Q4

REPORT INFORMATION
  Report Type: Spontaneous
  Country: US (occurrence: None)
  Receive Date: 20251205
  Receipt Date: 20251205
  Transmission Date: 20260118
  Serious: No
  Sender: FDA-CTU
  Company Number: None

PATIENT
  Age: 5 Year
  Sex: Male

DRUGS (1)
  1. EPIDIOLEX [Suspect]
     Active Substance: CANNABIDIOL
     Indication: Epilepsy
     Dosage: 100MG BID ORAL
     Route: 048
     Dates: start: 20250212, end: 20251121

REACTIONS (1)
  - Sedation [None]

NARRATIVE: CASE EVENT DATE: 20251121
